FAERS Safety Report 17413966 (Version 1)
Quarter: 2020Q1

REPORT INFORMATION
  Report Type: Report from Study
  Country: GB (occurrence: GB)
  Receive Date: 20200213
  Receipt Date: 20200213
  Transmission Date: 20200409
  Serious: Yes (Life-Threatening, Hospitalization)
  Sender: FDA-Public Use
  Company Number: GB-ROCHE-2397669

PATIENT
  Age: 42 Year
  Sex: Female

DRUGS (81)
  1. CHLORHEXIDINE [Concomitant]
     Active Substance: CHLORHEXIDINE
  2. CHLORPHENAMINE [Concomitant]
     Active Substance: CHLORPHENIRAMINE MALEATE
  3. CITALOPRAM [Concomitant]
     Active Substance: CITALOPRAM HYDROBROMIDE
  4. FILGRASTIM [Concomitant]
     Active Substance: FILGRASTIM
  5. FRUSEMIDE [FUROSEMIDE] [Concomitant]
     Active Substance: FUROSEMIDE
  6. HYDROCORTISONE. [Concomitant]
     Active Substance: HYDROCORTISONE
  7. LEVOMEPROMAZINE [Concomitant]
     Active Substance: LEVOMEPROMAZINE
  8. MAGNESIUM SULFATE. [Concomitant]
     Active Substance: MAGNESIUM SULFATE
  9. SANDO K [POTASSIUM BICARBONATE;POTASSIUM CHLORIDE] [Concomitant]
     Active Substance: POTASSIUM BICARBONATE\POTASSIUM CHLORIDE
  10. TRASTUZUMAB. [Suspect]
     Active Substance: TRASTUZUMAB
     Route: 041
     Dates: start: 20160718, end: 20160718
  11. PERTUZUMAB. [Suspect]
     Active Substance: PERTUZUMAB
     Indication: HER-2 POSITIVE BREAST CANCER
     Route: 042
     Dates: start: 20160718, end: 20160718
  12. DEXTROSE. [Concomitant]
     Active Substance: DEXTROSE
  13. ALFENTANIL. [Concomitant]
     Active Substance: ALFENTANIL
  14. ARGATROBAN. [Concomitant]
     Active Substance: ARGATROBAN
  15. BONJELA [CETALKONIUM CHLORIDE;CHOLINE SALICYLATE] [Concomitant]
  16. CALCIUM GLUCONATE. [Concomitant]
     Active Substance: CALCIUM GLUCONATE
  17. DANAPAROID [Concomitant]
     Active Substance: DANAPAROID
  18. GTN [Concomitant]
     Active Substance: NITROGLYCERIN
  19. HARTMANS [Concomitant]
  20. MORPHINE [Concomitant]
     Active Substance: MORPHINE
  21. PARACETAMOL [Concomitant]
     Active Substance: ACETAMINOPHEN
  22. ZOPICLONE [Concomitant]
     Active Substance: ZOPICLONE
  23. LETROZOLE. [Suspect]
     Active Substance: LETROZOLE
     Indication: HER-2 POSITIVE BREAST CANCER
     Route: 048
     Dates: start: 20170124
  24. CITALOPRAM [Concomitant]
     Active Substance: CITALOPRAM HYDROBROMIDE
     Indication: DEPRESSION
  25. ASPIRIN [ACETYLSALICYLIC ACID] [Concomitant]
     Active Substance: ASPIRIN
  26. CIPROFLOXACIN. [Concomitant]
     Active Substance: CIPROFLOXACIN
  27. CLOPIDOGREL [Concomitant]
     Active Substance: CLOPIDOGREL BISULFATE
  28. DALTEPARIN [Concomitant]
     Active Substance: DALTEPARIN
  29. FLUCONAZOLE. [Concomitant]
     Active Substance: FLUCONAZOLE
  30. FONDAPARINUX [Concomitant]
     Active Substance: FONDAPARINUX
  31. HEPARIN [Concomitant]
     Active Substance: HEPARIN SODIUM
  32. POTASSIUM CHLORIDE. [Concomitant]
     Active Substance: POTASSIUM CHLORIDE
  33. ORAMORPH SR SUSTAINED RELEASE [Concomitant]
     Active Substance: MORPHINE SULFATE
  34. OXYNORM [Concomitant]
     Active Substance: OXYCODONE HYDROCHLORIDE
  35. LANSOPRAZOLE. [Concomitant]
     Active Substance: LANSOPRAZOLE
  36. GLUCOSE [Concomitant]
     Active Substance: DEXTROSE
     Route: 042
  37. ALTEPLASE. [Concomitant]
     Active Substance: ALTEPLASE
     Route: 065
  38. GLUCOGEL [Concomitant]
  39. RAMIPRIL. [Concomitant]
     Active Substance: RAMIPRIL
  40. TOLTERODINE [Concomitant]
     Active Substance: TOLTERODINE
  41. VASOPRESSIN. [Concomitant]
     Active Substance: VASOPRESSIN
  42. TRASTUZUMAB. [Suspect]
     Active Substance: TRASTUZUMAB
     Indication: HER-2 POSITIVE BREAST CANCER
     Route: 042
     Dates: start: 20160808, end: 20160808
  43. DIHYDROCODEINE [Concomitant]
     Active Substance: DIHYDROCODEINE
     Indication: PAIN
  44. MAGNASPARTATE [Concomitant]
  45. BISOPROLOL [Concomitant]
     Active Substance: BISOPROLOL
  46. CODEINE [Concomitant]
     Active Substance: CODEINE
  47. ERDOSTEINE [Concomitant]
     Active Substance: ERDOSTEINE
  48. ERYTHROMYCIN. [Concomitant]
     Active Substance: ERYTHROMYCIN
  49. MAGNESIUM ASPARTATE [Concomitant]
     Active Substance: MAGNESIUM ASPARTATE
  50. METARAMINOL [Concomitant]
     Active Substance: METARAMINOL
  51. METOCLOPRAMIDE. [Concomitant]
     Active Substance: METOCLOPRAMIDE
  52. MORPHINE SULPHATE [Concomitant]
     Active Substance: MORPHINE SULFATE
  53. PROPOFOL. [Concomitant]
     Active Substance: PROPOFOL
  54. TAUROLOCK [Concomitant]
     Active Substance: TAUROLIDINE
  55. TEICOPLANIN [Concomitant]
     Active Substance: TEICOPLANIN
  56. TRANEXAMIC ACID. [Concomitant]
     Active Substance: TRANEXAMIC ACID
  57. TRASTUZUMAB. [Suspect]
     Active Substance: TRASTUZUMAB
     Route: 041
     Dates: start: 20160830, end: 20160830
  58. ALFENTANIL. [Concomitant]
     Active Substance: ALFENTANIL
  59. MEROPENEM. [Concomitant]
     Active Substance: MEROPENEM
  60. MIDAZOLAM HYDROCHLORIDE. [Concomitant]
     Active Substance: MIDAZOLAM HYDROCHLORIDE
  61. NORADRENALINE [NOREPINEPHRINE] [Concomitant]
     Active Substance: NOREPINEPHRINE
  62. SALBUTAMOL [Concomitant]
     Active Substance: ALBUTEROL
  63. TAZOCIN [Concomitant]
     Active Substance: PIPERACILLIN SODIUM\TAZOBACTAM SODIUM
  64. ONDANSETRON [Concomitant]
     Active Substance: ONDANSETRON
  65. LOPERAMIDE [Concomitant]
     Active Substance: LOPERAMIDE
  66. CYCLIZINE [Concomitant]
     Active Substance: CYCLIZINE
  67. EPOPROSTENOL. [Concomitant]
     Active Substance: EPOPROSTENOL
  68. FRAGMIN [Concomitant]
     Active Substance: DALTEPARIN SODIUM
  69. METRONIDAZOLE. [Concomitant]
     Active Substance: METRONIDAZOLE
  70. OMEPRAZOLE. [Concomitant]
     Active Substance: OMEPRAZOLE
  71. SANDOCAL 1000 [Concomitant]
  72. DOXYCYCLINE. [Suspect]
     Active Substance: DOXYCYCLINE
     Indication: HER-2 POSITIVE BREAST CANCER
     Route: 042
     Dates: start: 20160718
  73. PERTUZUMAB. [Suspect]
     Active Substance: PERTUZUMAB
     Route: 042
     Dates: start: 20160808, end: 20160830
  74. DOXYCYCLINE. [Concomitant]
     Active Substance: DOXYCYCLINE
  75. CYCLIZINE [Concomitant]
     Active Substance: CYCLIZINE
     Indication: NAUSEA
  76. BUSCOPAN [Concomitant]
     Active Substance: BUTYLSCOPOLAMINE BROMIDE
  77. DANAPAROID [Concomitant]
     Active Substance: DANAPAROID
  78. DIAZEPAM. [Concomitant]
     Active Substance: DIAZEPAM
     Route: 048
  79. ERDOTIN [Concomitant]
     Active Substance: ERDOSTEINE
  80. GENTAMICIN. [Concomitant]
     Active Substance: GENTAMICIN
  81. NASEPTIN [Concomitant]
     Active Substance: CHLORHEXIDINE HYDROCHLORIDE\NEOMYCIN SULFATE

REACTIONS (1)
  - Colitis [Recovered/Resolved]

NARRATIVE: CASE EVENT DATE: 20160907
